FAERS Safety Report 9283633 (Version 2)
Quarter: 2013Q3

REPORT INFORMATION
  Report Type: Spontaneous
  Country: DK (occurrence: DK)
  Receive Date: 20130510
  Receipt Date: 20130827
  Transmission Date: 20140515
  Serious: Yes (Other)
  Sender: FDA-Public Use
  Company Number: PHHY2013DK045150

PATIENT
  Age: 42 Year
  Sex: Female
  Weight: 62 kg

DRUGS (1)
  1. CITALOPRAM SANDOZ [Suspect]
     Indication: DEPRESSION
     Dosage: 10 MG, QD
     Route: 048
     Dates: start: 20110901, end: 20120427

REACTIONS (9)
  - Musculoskeletal stiffness [Unknown]
  - Vaginal haemorrhage [Recovered/Resolved]
  - Anxiety [Unknown]
  - Restlessness [Unknown]
  - Diarrhoea [Unknown]
  - Dizziness [Unknown]
  - Nausea [Unknown]
  - Fatigue [Unknown]
  - Vomiting [Recovered/Resolved]
